FAERS Safety Report 7807788-8 (Version None)
Quarter: 2011Q4

REPORT INFORMATION
  Report Type: 
  Country: None (occurrence: None)
  Receive Date: 20111011
  Receipt Date: 20110929
  Transmission Date: 20120403
  Serious: Yes (Hospitalization)
  Sender: FDA-Public Use
  Company Number: FR-SANOFI-AVENTIS-2011SA053161

PATIENT
  Age: 76 Year
  Sex: Male
  Weight: 98 kg

DRUGS (11)
  1. AMARYL [Concomitant]
  2. LASIX [Concomitant]
  3. ASPIRIN [Concomitant]
  4. PERINDOPRIL ERBUMINE [Concomitant]
     Dosage: 10/10
  5. ALFUZOSIN HCL [Concomitant]
  6. AMLODIPINE [Concomitant]
  7. ASPIRIN [Concomitant]
  8. ESOMEPRAZOLE SODIUM [Concomitant]
  9. BISOPROLOL FUMARATE [Concomitant]
  10. BISOPROLOL FUMARATE [Concomitant]
  11. DRONEDARONE HCL [Suspect]
     Indication: ATRIAL FIBRILLATION
     Route: 048
     Dates: start: 20110615, end: 20110730

REACTIONS (2)
  - ATRIAL FIBRILLATION [None]
  - PLEURAL EFFUSION [None]
